FAERS Safety Report 7167407-3 (Version None)
Quarter: 2010Q4

REPORT INFORMATION
  Report Type: 
  Country: None (occurrence: None)
  Receive Date: 20101216
  Receipt Date: 20091119
  Transmission Date: 20110411
  Serious: No
  Sender: FDA-Public Use
  Company Number: A0818057A

PATIENT
  Age: 38 Year
  Sex: Female

DRUGS (1)
  1. NICOTINE POLACRILEX [Suspect]
     Dates: start: 20091118, end: 20091118

REACTIONS (2)
  - HYPERSENSITIVITY [None]
  - THROAT IRRITATION [None]
